FAERS Safety Report 9860117 (Version 1)
Quarter: 2014Q1

REPORT INFORMATION
  Report Type: Spontaneous
  Country: FR (occurrence: FR)
  Receive Date: 20140201
  Receipt Date: 20140201
  Transmission Date: 20141002
  Serious: Yes (Hospitalization)
  Sender: FDA-Public Use
  Company Number: FR-ROCHE-1342773

PATIENT
  Age: 52 Year
  Sex: Male

DRUGS (11)
  1. CELLCEPT [Suspect]
     Indication: PROPHYLAXIS AGAINST TRANSPLANT REJECTION
     Route: 048
     Dates: start: 201211
  2. APROVEL [Concomitant]
     Route: 048
  3. CORTANCYL [Concomitant]
     Route: 048
  4. INEXIUM [Concomitant]
     Route: 048
  5. LERCAN [Concomitant]
     Route: 048
  6. PROGRAF [Concomitant]
  7. LASILIX FAIBLE [Concomitant]
     Route: 048
  8. SODIUM BICARBONATE [Concomitant]
  9. LANTUS [Concomitant]
  10. NOVORAPID [Concomitant]
  11. SERETIDE [Concomitant]

REACTIONS (1)
  - Agranulocytosis [Recovered/Resolved]
